FAERS Safety Report 7226109-5 (Version None)
Quarter: 2011Q1

REPORT INFORMATION
  Report Type: 
  Country: None (occurrence: None)
  Receive Date: 20110113
  Receipt Date: 20110109
  Transmission Date: 20110831
  Serious: Yes (Life-Threatening, Hospitalization, Other)
  Sender: FDA-Public Use
  Company Number: NL-ABBOTT-11P-114-0696007-00

PATIENT
  Age: 32 Year
  Sex: Female

DRUGS (4)
  1. OXAZEPAM [Concomitant]
     Indication: PRODUCT USED FOR UNKNOWN INDICATION
  2. TEMAZEPAM [Concomitant]
     Indication: PRODUCT USED FOR UNKNOWN INDICATION
  3. VALPROIC ACID [Suspect]
     Indication: MIGRAINE
  4. INDOMETHACIN [Concomitant]
     Indication: PRODUCT USED FOR UNKNOWN INDICATION

REACTIONS (13)
  - TOXICITY TO VARIOUS AGENTS [None]
  - HYPOTENSION [None]
  - HYPOTHERMIA [None]
  - BLOOD LACTIC ACID INCREASED [None]
  - SINUS BRADYCARDIA [None]
  - HYPERAMMONAEMIA [None]
  - COMA [None]
  - HYPOGLYCAEMIA [None]
  - ELECTROCARDIOGRAM QT PROLONGED [None]
  - RESPIRATORY DEPRESSION [None]
  - HYPERKALAEMIA [None]
  - DEPRESSED LEVEL OF CONSCIOUSNESS [None]
  - METABOLIC ACIDOSIS [None]
